FAERS Safety Report 5654924-8 (Version None)
Quarter: 2008Q1

REPORT INFORMATION
  Report Type: 
  Country: None (occurrence: None)
  Receive Date: 20080307
  Receipt Date: 20070910
  Transmission Date: 20080703
  Serious: No
  Sender: FDA-Public Use
  Company Number: A0680180A

PATIENT
  Age: 61 Year
  Sex: Female

DRUGS (15)
  1. REQUIP [Suspect]
     Indication: RESTLESS LEGS SYNDROME
     Dosage: .25MG PER DAY
     Route: 048
     Dates: start: 20070601
  2. CLONAZEPAM [Concomitant]
  3. BENADRYL [Concomitant]
     Indication: PRURITUS
  4. VICODIN [Concomitant]
  5. LIPITOR [Concomitant]
  6. NEURONTIN [Concomitant]
  7. PRILOSEC [Concomitant]
  8. TRIAMTERENE AND HYDROCHLOROTHIAZIDE [Concomitant]
  9. CYMBALTA [Concomitant]
  10. ZINC [Concomitant]
  11. VITAMIN E [Concomitant]
  12. MULTI-VITAMIN [Concomitant]
  13. FOLIC ACID [Concomitant]
  14. VITAMIN B-12 [Concomitant]
  15. ASCORBIC ACID [Concomitant]

REACTIONS (2)
  - CHEST PAIN [None]
  - NIGHT SWEATS [None]
